FAERS Safety Report 15366642 (Version 4)
Quarter: 2019Q1

REPORT INFORMATION
  Report Type: Spontaneous
  Country: BR (occurrence: BR)
  Receive Date: 20180910
  Receipt Date: 20190215
  Transmission Date: 20190417
  Serious: Yes (Hospitalization, Other)
  Sender: FDA-Public Use
  Company Number: BR-GLAXOSMITHKLINE-BR2017GSK190025

PATIENT
  Age: 24 Year
  Sex: Female
  Weight: 55 kg

DRUGS (6)
  1. CIMETIDINE [Concomitant]
     Active Substance: CIMETIDINE
     Indication: PRODUCT USED FOR UNKNOWN INDICATION
     Dosage: UNK
  2. BENLYSTA [Suspect]
     Active Substance: BELIMUMAB
     Indication: SYSTEMIC LUPUS ERYTHEMATOSUS
     Dosage: UNK
     Dates: start: 20171123
  3. PREDNISONE. [Concomitant]
     Active Substance: PREDNISONE
     Indication: PRODUCT USED FOR UNKNOWN INDICATION
     Dosage: 7.5 MG, UNK
  4. REUQUINOL [Concomitant]
     Active Substance: HYDROXYCHLOROQUINE SULFATE
     Indication: PRODUCT USED FOR UNKNOWN INDICATION
     Dosage: UNK
  5. METHOTREXATE. [Suspect]
     Active Substance: METHOTREXATE
     Indication: PRODUCT USED FOR UNKNOWN INDICATION
     Dosage: UNK
  6. PLASIL (METOCLOPRAMIDE HYDROCHLORIDE) [Concomitant]
     Indication: PRODUCT USED FOR UNKNOWN INDICATION
     Dosage: UNK

REACTIONS (23)
  - Abdominal discomfort [Unknown]
  - Pain [Unknown]
  - Eye irritation [Unknown]
  - Transaminases increased [Unknown]
  - Headache [Unknown]
  - Nephritis [Unknown]
  - Dry mouth [Unknown]
  - Oropharyngeal pain [Unknown]
  - Cough [Unknown]
  - Overdose [Recovered/Resolved]
  - Product preparation issue [Recovered/Resolved]
  - Arthralgia [Unknown]
  - Somnolence [Unknown]
  - Liver disorder [Unknown]
  - Fatigue [Unknown]
  - Product dose omission [Recovered/Resolved]
  - Nausea [Unknown]
  - Drug effect decreased [Unknown]
  - Pain in extremity [Unknown]
  - Stress [Unknown]
  - Gastrointestinal disorder [Unknown]
  - Hospitalisation [Unknown]
  - Weight decreased [Unknown]

NARRATIVE: CASE EVENT DATE: 20171123
